FAERS Safety Report 9772809 (Version 1)
Quarter: 2013Q4

REPORT INFORMATION
  Report Type: Spontaneous
  Country: US (occurrence: None)
  Receive Date: 20131218
  Receipt Date: 20131218
  Transmission Date: 20140711
  Serious: Yes (Life-Threatening, Hospitalization)
  Sender: FDA-Public Use
  Company Number: None

PATIENT
  Age: 62 Year
  Sex: Male
  Weight: 79 kg

DRUGS (9)
  1. PRASUGREL [Suspect]
     Indication: ACUTE MYOCARDIAL INFARCTION
     Dates: start: 20131209, end: 20131211
  2. PRASUGREL [Suspect]
     Indication: CORONARY ARTERIAL STENT INSERTION
     Dates: start: 20131209, end: 20131211
  3. ASA [Concomitant]
  4. ATORVASTATIN [Concomitant]
  5. PRASUGREL [Concomitant]
  6. METOPROTOL TARTARATE [Concomitant]
  7. PANTOPRAZOLE (PROTONIX) [Concomitant]
  8. OMEPRAZOLE [Concomitant]
  9. NPH INSULIN [Concomitant]

REACTIONS (4)
  - Upper gastrointestinal haemorrhage [None]
  - Diabetic ketoacidosis [None]
  - Thrombosis in device [None]
  - Haematemesis [None]
